FAERS Safety Report 22162374 (Version 1)
Quarter: 2023Q1

REPORT INFORMATION
  Report Type: Spontaneous
  Country: US (occurrence: US)
  Receive Date: 20230331
  Receipt Date: 20230331
  Transmission Date: 20230418
  Serious: No
  Sender: FDA-Public Use
  Company Number: US-PFIZER INC-202300135681

PATIENT
  Sex: Male

DRUGS (1)
  1. PAXLOVID [Suspect]
     Active Substance: NIRMATRELVIR\RITONAVIR
     Dosage: UNK
     Dates: start: 20230328

REACTIONS (3)
  - Intentional product misuse [Unknown]
  - Wrong technique in product usage process [Unknown]
  - Product use complaint [Unknown]

NARRATIVE: CASE EVENT DATE: 20230328
